FAERS Safety Report 13982683 (Version 1)
Quarter: 2017Q3

REPORT INFORMATION
  Report Type: Spontaneous
  Country: US (occurrence: US)
  Receive Date: 20170918
  Receipt Date: 20170918
  Transmission Date: 20171128
  Serious: No
  Sender: FDA-Public Use
  Company Number: US-GLENMARK PHARMACEUTICALS-2017GMK027967

PATIENT

DRUGS (2)
  1. CALCIPOTRIENE CREAM 0.005% [Suspect]
     Active Substance: CALCIPOTRIENE
     Indication: RASH
  2. CALCIPOTRIENE CREAM 0.005% [Suspect]
     Active Substance: CALCIPOTRIENE
     Indication: BACTERIAL INFECTION
     Dosage: 1 APPLICATION IN THE MORNING AND IN THE NIGHT
     Route: 065
     Dates: start: 20170508

REACTIONS (1)
  - Drug ineffective for unapproved indication [Unknown]
